FAERS Safety Report 24959490 (Version 1)
Quarter: 2025Q1

REPORT INFORMATION
  Report Type: Spontaneous
  Country: CN (occurrence: CN)
  Receive Date: 20250212
  Receipt Date: 20250212
  Transmission Date: 20250409
  Serious: Yes (Other)
  Sender: NOVARTIS
  Company Number: CN-002147023-NVSC2025CN022569

PATIENT
  Age: 59 Year
  Sex: Male
  Weight: 67 kg

DRUGS (4)
  1. TRAMETINIB [Suspect]
     Active Substance: TRAMETINIB
     Indication: Targeted cancer therapy
     Dosage: 2 MG, QD
     Route: 048
     Dates: start: 20230918, end: 20240517
  2. TRAMETINIB [Suspect]
     Active Substance: TRAMETINIB
     Route: 065
  3. DABRAFENIB [Suspect]
     Active Substance: DABRAFENIB
     Indication: Targeted cancer therapy
     Dosage: 150 MG, BID
     Route: 048
     Dates: start: 20230918, end: 20240517
  4. DABRAFENIB [Suspect]
     Active Substance: DABRAFENIB
     Dosage: 75 MG, BID
     Route: 065

REACTIONS (3)
  - Myocardial necrosis marker increased [Recovering/Resolving]
  - Pyrexia [Recovered/Resolved]
  - Pain of skin [Recovered/Resolved]

NARRATIVE: CASE EVENT DATE: 20230918
